FAERS Safety Report 13524091 (Version 2)
Quarter: 2017Q2

REPORT INFORMATION
  Report Type: Spontaneous
  Country: US (occurrence: US)
  Receive Date: 20170508
  Receipt Date: 20170530
  Transmission Date: 20170830
  Serious: Yes (Other)
  Sender: FDA-Public Use
  Company Number: US-BAUSCH-BL-2017-011931

PATIENT
  Sex: Female
  Weight: 99.88 kg

DRUGS (3)
  1. CERAVE HYDRATING CLEANSER BAR [Suspect]
     Active Substance: COSMETICS
     Indication: PRODUCT USED FOR UNKNOWN INDICATION
     Route: 061
     Dates: end: 20170428
  2. CERAVE THERAPEUTIC HAND [Suspect]
     Active Substance: DIMETHICONE
     Indication: PRODUCT USED FOR UNKNOWN INDICATION
     Route: 061
     Dates: end: 20170428
  3. CERAVE MOISTURIZING CREAM [Suspect]
     Active Substance: COSMETICS
     Indication: PRODUCT USED FOR UNKNOWN INDICATION
     Route: 061
     Dates: end: 20170428

REACTIONS (2)
  - Gallbladder pain [Unknown]
  - Gallbladder disorder [Unknown]
